FAERS Safety Report 7260329-9 (Version None)
Quarter: 2011Q1

REPORT INFORMATION
  Report Type: 
  Country: None (occurrence: None)
  Receive Date: 20110130
  Receipt Date: 20101019
  Transmission Date: 20110831
  Serious: No
  Sender: FDA-Public Use
  Company Number: US-ABBOTT-10P-163-0679536-00

PATIENT
  Sex: Female
  Weight: 45.4 kg

DRUGS (4)
  1. IMURAN [Concomitant]
     Indication: CROHN'S DISEASE
  2. HUMIRA [Suspect]
     Indication: CROHN'S DISEASE
     Dates: start: 20100901
  3. PENTASA [Concomitant]
     Indication: CROHN'S DISEASE
  4. ENTOCORT EC [Concomitant]
     Indication: CROHN'S DISEASE

REACTIONS (2)
  - DEVICE MALFUNCTION [None]
  - INJECTION SITE PAIN [None]
